FAERS Safety Report 6572076-7 (Version None)
Quarter: 2010Q1

REPORT INFORMATION
  Report Type: 
  Country: None (occurrence: None)
  Receive Date: 20100205
  Receipt Date: 20100126
  Transmission Date: 20100710
  Serious: Yes (Hospitalization)
  Sender: FDA-Public Use
  Company Number: PHHY2009DE29594

PATIENT
  Age: 75 Year
  Sex: Male
  Weight: 75 kg

DRUGS (14)
  1. PROVAS COMP [Suspect]
     Indication: HYPERTENSION
     Dosage: 160 MG
     Route: 048
     Dates: start: 20070201
  2. ALENDRONIC ACID [Suspect]
     Indication: OSTEOPOROSIS
     Dosage: 70 MG
     Route: 048
     Dates: start: 20070201
  3. FALITHROM [Suspect]
     Indication: EMBOLISM
     Dosage: 3 MG
     Route: 048
     Dates: start: 20080805, end: 20081103
  4. ALLOPURINOL [Concomitant]
     Indication: HYPERURICAEMIA
     Dosage: 300 MG
     Route: 048
     Dates: start: 20020101
  5. ARANESP [Concomitant]
     Indication: ANAEMIA
     Dosage: 40 MG
     Route: 058
     Dates: start: 20081101
  6. CARMEN [Concomitant]
     Indication: HYPERTENSION
     Dosage: 10 MG
     Route: 048
     Dates: start: 20070201
  7. DEKRISTOL [Concomitant]
     Indication: OSTEOPOROSIS
     Dosage: 20000 IU
     Route: 048
     Dates: start: 20081101
  8. DOXAZOSIN MESYLATE [Concomitant]
     Indication: HYPERTENSION
     Dosage: 4 MG
     Route: 048
     Dates: start: 20020101
  9. NOVAMINSULFON [Concomitant]
     Indication: THORACIC VERTEBRAL FRACTURE
     Dosage: 750 MG
     Route: 048
     Dates: start: 20081001
  10. PANTOZOL [Concomitant]
     Indication: PROPHYLAXIS AGAINST GASTROINTESTINAL ULCER
     Dosage: 40 MG
     Route: 048
     Dates: start: 20080701
  11. PENTAERYTHRITOL TETRANITRATE [Concomitant]
     Indication: CORONARY ARTERY DISEASE
     Dosage: 80 MG
     Route: 048
     Dates: start: 20060101
  12. ROCALTROL [Concomitant]
     Indication: OSTEOPOROSIS
     Dosage: 0.75 MG, QW
     Route: 048
     Dates: start: 20081101
  13. TORASEMIDE [Concomitant]
     Indication: HYPERTENSION
     Dosage: 10 MG
     Route: 048
     Dates: start: 20070201
  14. TRANSTEC [Concomitant]
     Indication: PAIN
     Dosage: 35 UG/ HR
     Route: 062
     Dates: start: 20081101

REACTIONS (10)
  - ANGIODYSPLASIA [None]
  - ASTHENIA [None]
  - BLOOD ALKALINE PHOSPHATASE INCREASED [None]
  - BLOOD CREATININE INCREASED [None]
  - C-REACTIVE PROTEIN INCREASED [None]
  - FAECES DISCOLOURED [None]
  - GASTROINTESTINAL HAEMORRHAGE [None]
  - HAEMATOCRIT DECREASED [None]
  - HAEMOGLOBIN DECREASED [None]
  - SERUM FERRITIN DECREASED [None]
